FAERS Safety Report 19052382 (Version 1)
Quarter: 2021Q1

REPORT INFORMATION
  Report Type: Spontaneous
  Country: IN (occurrence: IN)
  Receive Date: 20210324
  Receipt Date: 20210324
  Transmission Date: 20210420
  Serious: Yes (Death, Hospitalization, Other)
  Sender: FDA-Public Use
  Company Number: IN-AMGEN-INDSP2021042053

PATIENT
  Age: 17 Year
  Sex: Female

DRUGS (7)
  1. MESALAMINE. [Concomitant]
     Active Substance: MESALAMINE
     Indication: CROHN^S DISEASE
     Dosage: 2400 MILLIGRAM
  2. FILGRASTIM [Suspect]
     Active Substance: FILGRASTIM
     Indication: FEBRILE NEUTROPENIA
     Dosage: 5 MICROGRAM/KILOGRAM, QD
     Route: 065
     Dates: start: 2018
  3. FILGRASTIM [Suspect]
     Active Substance: FILGRASTIM
     Indication: PANCYTOPENIA
     Dosage: 10 MICROGRAM/KILOGRAM, QD
     Route: 065
     Dates: start: 2018
  4. PREDNISOLONE. [Concomitant]
     Active Substance: PREDNISOLONE
     Indication: CROHN^S DISEASE
     Dosage: 30 MILLIGRAM
  5. CEFEPIME [Concomitant]
     Active Substance: CEFEPIME HYDROCHLORIDE
     Dosage: UNK
     Dates: start: 2018
  6. AZATHIOPRINE. [Concomitant]
     Active Substance: AZATHIOPRINE
     Indication: CROHN^S DISEASE
     Dosage: 50 MG (1 MG/KG) ONCE DAILY THEN INCREASE TO 100 MG (2 MG/KG)
  7. LINEZOLID. [Concomitant]
     Active Substance: LINEZOLID
     Dosage: UNK
     Dates: start: 2018

REACTIONS (9)
  - Death [Fatal]
  - Escherichia infection [Unknown]
  - Anastomotic leak [Unknown]
  - Wound infection [Unknown]
  - Off label use [Unknown]
  - Intestinal obstruction [Unknown]
  - Intestinal haemorrhage [Unknown]
  - Sepsis [Unknown]
  - General physical health deterioration [Unknown]

NARRATIVE: CASE EVENT DATE: 2018
